FAERS Safety Report 5097455-9 (Version None)
Quarter: 2006Q3

REPORT INFORMATION
  Report Type: 
  Country: None (occurrence: None)
  Receive Date: 20060901
  Receipt Date: 20060823
  Transmission Date: 20061208
  Serious: Yes (Other)
  Sender: FDA-Public Use
  Company Number: 2006103540

PATIENT
  Age: 59 Year
  Sex: Male
  Weight: 75.7507 kg

DRUGS (6)
  1. LIPITOR [Suspect]
     Indication: BLOOD CHOLESTEROL INCREASED
     Dosage: 5 MG (5 MG, 1 IN 1 D)
     Dates: start: 20000101, end: 20060801
  2. ASPIRIN [Concomitant]
  3. RABEPRAZOLE SODIUM [Concomitant]
  4. WARFARIN SODIUM [Concomitant]
  5. ALL OTHER THERAPEUTIC PRODUCTS [Concomitant]
  6. ZETIA [Concomitant]

REACTIONS (1)
  - CORONARY ARTERY DISEASE [None]
